FAERS Safety Report 7039795-X (Version None)
Quarter: 2010Q4

REPORT INFORMATION
  Report Type: 
  Country: None (occurrence: None)
  Receive Date: 20101012
  Receipt Date: 20101005
  Transmission Date: 20110411
  Serious: Yes (Life-Threatening)
  Sender: FDA-Public Use
  Company Number: CA-MERCK-1010USA00599

PATIENT
  Age: 40 Year
  Sex: Male
  Weight: 80 kg

DRUGS (8)
  1. ISENTRESS [Suspect]
     Route: 048
  2. CITALOPRAM [Concomitant]
     Route: 065
  3. EMTRIVA [Concomitant]
     Route: 065
  4. LOPINAVIR [Concomitant]
     Route: 065
  5. NEVIRAPINE [Concomitant]
     Route: 065
  6. OLANZAPINE [Concomitant]
     Route: 065
  7. RITONAVIR [Concomitant]
     Route: 065
  8. TENOFOVIR [Concomitant]
     Route: 065

REACTIONS (4)
  - DEPRESSION [None]
  - HALLUCINATION, AUDITORY [None]
  - PARANOIA [None]
  - SUICIDAL IDEATION [None]
